FAERS Safety Report 9273866 (Version 1)
Quarter: 2013Q2

REPORT INFORMATION
  Report Type: Spontaneous
  Country: US (occurrence: US)
  Receive Date: 20130506
  Receipt Date: 20130506
  Transmission Date: 20140414
  Serious: No
  Sender: FDA-Public Use
  Company Number: US-PFIZER INC-2013139908

PATIENT
  Age: 84 Year
  Sex: Male
  Weight: 81.63 kg

DRUGS (3)
  1. LYRICA [Suspect]
     Indication: NEUROPATHY PERIPHERAL
     Dosage: UNK
     Dates: end: 201208
  2. LYRICA [Suspect]
     Dosage: UNK
  3. GABAPENTIN [Suspect]
     Indication: NEUROPATHY PERIPHERAL
     Dosage: 700 MG, 1X/DAY (100 MG X 2) IN THE MORNING, 200 MG IN THE NOON AND 300 MG AT NIGHT )
     Route: 048
     Dates: start: 201208, end: 2012

REACTIONS (2)
  - Platelet count decreased [Unknown]
  - Drug ineffective [Unknown]
